FAERS Safety Report 12232283 (Version 2)
Quarter: 2018Q3

REPORT INFORMATION
  Report Type: Spontaneous
  Country: FR (occurrence: FR)
  Receive Date: 20160401
  Receipt Date: 20180721
  Transmission Date: 20181010
  Serious: Yes (Death, Hospitalization)
  Sender: FDA-Public Use
  Company Number: FR-SA-2016SA060998

PATIENT
  Age: 37 Year
  Sex: Male
  Weight: 88 kg

DRUGS (4)
  1. NEFOPAM [Suspect]
     Active Substance: NEFOPAM
     Indication: PRODUCT USED FOR UNKNOWN INDICATION
     Dosage: UNK UNK,UNK
     Route: 042
     Dates: start: 20160222, end: 20160228
  2. LOVENOX [Suspect]
     Active Substance: ENOXAPARIN SODIUM
     Indication: PRODUCT USED FOR UNKNOWN INDICATION
     Dosage: UNK UNK,UNK
     Route: 058
     Dates: start: 20160223, end: 20160228
  3. CIFLOX (CIPROFLOXACIN) [Suspect]
     Active Substance: CIPROFLOXACIN
     Dosage: UNK UNK,UNK
     Route: 048
     Dates: start: 20160222, end: 20160226
  4. TAZOCILLINE [Suspect]
     Active Substance: PIPERACILLIN SODIUM\TAZOBACTAM SODIUM
     Indication: PRODUCT USED FOR UNKNOWN INDICATION
     Dosage: UNK UNK,UNK
     Route: 042
     Dates: start: 20160222, end: 20160227

REACTIONS (3)
  - Septic shock [None]
  - Toxic epidermal necrolysis [Recovering/Resolving]
  - Drug reaction with eosinophilia and systemic symptoms [None]

NARRATIVE: CASE EVENT DATE: 20160227
